FAERS Safety Report 12915691 (Version 3)
Quarter: 2017Q1

REPORT INFORMATION
  Report Type: Report from Study
  Country: DE (occurrence: DE)
  Receive Date: 20161106
  Receipt Date: 20170329
  Transmission Date: 20170428
  Serious: Yes (Hospitalization)
  Sender: FDA-Public Use
  Company Number: DE-ROCHE-1849889

PATIENT
  Age: 62 Year
  Sex: Male

DRUGS (10)
  1. RAMIPRIL. [Concomitant]
     Active Substance: RAMIPRIL
  2. TOCILIZUMAB [Suspect]
     Active Substance: TOCILIZUMAB
     Indication: RHEUMATOID ARTHRITIS
     Route: 058
     Dates: end: 20160527
  3. FRAXIPARIN [Concomitant]
     Active Substance: NADROPARIN CALCIUM
  4. DEKRISTOL [Concomitant]
     Active Substance: CHOLECALCIFEROL
  5. AMLODIPIN [Concomitant]
     Active Substance: AMLODIPINE BESYLATE
  6. RANITIDIN [Concomitant]
     Active Substance: RANITIDINE HYDROCHLORIDE
  7. METHOTREXATE. [Suspect]
     Active Substance: METHOTREXATE
     Indication: RHEUMATOID ARTHRITIS
     Route: 065
     Dates: end: 20160530
  8. BISOPROLOL [Concomitant]
     Active Substance: BISOPROLOL
  9. FOLVERLAN [Concomitant]
     Active Substance: FOLIC ACID
  10. DOXAZOSIN [Concomitant]
     Active Substance: DOXAZOSIN\DOXAZOSIN MESYLATE

REACTIONS (4)
  - Post procedural haematoma [Unknown]
  - Abdominal wall haemorrhage [Unknown]
  - Incisional hernia [Unknown]
  - Abdominal wall haematoma [Unknown]

NARRATIVE: CASE EVENT DATE: 201501
